FAERS Safety Report 5276566-9 (Version None)
Quarter: 2007Q1

REPORT INFORMATION
  Report Type: 
  Country: None (occurrence: None)
  Receive Date: 20070327
  Receipt Date: 20070316
  Transmission Date: 20070707
  Serious: Yes (Other)
  Sender: FDA-Public Use
  Company Number: PHBS2007SE04724

PATIENT
  Age: 73 Year
  Sex: Male

DRUGS (13)
  1. AREDIA [Suspect]
     Indication: MULTIPLE MYELOMA
     Dosage: 90 MG, QMO
     Route: 042
     Dates: start: 20040601, end: 20070112
  2. OXYNORM [Concomitant]
  3. OXYCONTIN [Concomitant]
  4. PANODIL [Concomitant]
  5. DELTISON [Concomitant]
  6. ORALVITE [Concomitant]
  7. PRIMPERAN INJ [Concomitant]
  8. LAXOBERAL [Concomitant]
     Route: 048
  9. METOPROLOL SUCCINATE [Concomitant]
  10. KALCIPOS [Concomitant]
  11. ALLOPURINOL [Concomitant]
  12. OMEPRAZOLE [Concomitant]
  13. FOLACIN [Concomitant]

REACTIONS (3)
  - BONE DISORDER [None]
  - OSTEONECROSIS [None]
  - TOOTH DISORDER [None]
